FAERS Safety Report 20562431 (Version 1)
Quarter: 2022Q1

REPORT INFORMATION
  Report Type: Report from Study
  Country: US (occurrence: US)
  Receive Date: 20220307
  Receipt Date: 20220307
  Transmission Date: 20220423
  Serious: Yes (Death, Hospitalization)
  Sender: FDA-Public Use
  Company Number: US-BAUSCH-BL-2021-025932

PATIENT
  Age: 59 Year
  Sex: Male
  Weight: 68.100 kg

DRUGS (4)
  1. XIFAXAN [Suspect]
     Active Substance: RIFAXIMIN
     Indication: Hepatic encephalopathy
     Route: 048
     Dates: start: 202003, end: 2021
  2. XIFAXAN [Suspect]
     Active Substance: RIFAXIMIN
     Dosage: ABLE TO LOCATE 7 TO 8 TABLETS OF XIFAXAN 550 MG
     Route: 048
     Dates: start: 2021, end: 2021
  3. XIFAXAN [Suspect]
     Active Substance: RIFAXIMIN
     Route: 048
     Dates: start: 20200513
  4. LACTULOSE [Concomitant]
     Active Substance: LACTULOSE
     Indication: Product used for unknown indication

REACTIONS (6)
  - Death [Fatal]
  - Hepatic encephalopathy [Unknown]
  - Condition aggravated [Unknown]
  - Therapy interrupted [Unknown]
  - Insurance issue [Unknown]
  - Inappropriate schedule of product administration [Unknown]

NARRATIVE: CASE EVENT DATE: 20200513
